FAERS Safety Report 14682557 (Version 1)
Quarter: 2018Q1

REPORT INFORMATION
  Report Type: Report from Study
  Country: US (occurrence: US)
  Receive Date: 20180327
  Receipt Date: 20180327
  Transmission Date: 20180509
  Serious: Yes (Hospitalization)
  Sender: FDA-Public Use
  Company Number: US-BIOGEN-2018BI00546514

PATIENT
  Sex: Female

DRUGS (1)
  1. ZINBRYTA [Suspect]
     Active Substance: DACLIZUMAB
     Indication: MULTIPLE SCLEROSIS
     Route: 065

REACTIONS (7)
  - Renal infarct [Unknown]
  - Fatigue [Unknown]
  - Cystitis [Unknown]
  - Somnolence [Unknown]
  - Haemangioma of liver [Unknown]
  - Affective disorder [Unknown]
  - Multiple sclerosis relapse [Unknown]
